FAERS Safety Report 5811029-0 (Version None)
Quarter: 2008Q3

REPORT INFORMATION
  Report Type: 
  Country: None (occurrence: None)
  Receive Date: 20080711
  Receipt Date: 20080415
  Transmission Date: 20090109
  Serious: No
  Sender: FDA-Public Use
  Company Number: 2008BM000084

PATIENT

DRUGS (1)
  1. KUVAN [Suspect]
     Indication: PHENYLKETONURIA

REACTIONS (1)
  - AMINO ACID LEVEL DECREASED [None]
